FAERS Safety Report 19709789 (Version 11)
Quarter: 2023Q2

REPORT INFORMATION
  Report Type: Report from Study
  Country: DE (occurrence: DE)
  Receive Date: 20210817
  Receipt Date: 20230530
  Transmission Date: 20230722
  Serious: Yes (Hospitalization, Other)
  Sender: FDA-Public Use
  Company Number: DE-002147023-NVSC2021DE030105

PATIENT
  Sex: Female
  Weight: 94.4 kg

DRUGS (6)
  1. LETROZOLE [Suspect]
     Active Substance: LETROZOLE
     Indication: Breast cancer metastatic
     Dosage: 600MG,QD(21 DAYS INTAKE,7 DAYS PAUS
     Route: 048
     Dates: start: 20210126
  2. LETROZOLE [Suspect]
     Active Substance: LETROZOLE
     Indication: Hormone receptor positive HER2 negative breast cancer
     Dosage: 2.5 MILLIGRAM, QD
     Route: 048
     Dates: start: 20210126
  3. KISQALI [Suspect]
     Active Substance: RIBOCICLIB
     Indication: Breast cancer metastatic
     Dosage: 600 MILLIGRAM, QD
     Route: 048
     Dates: start: 20210125, end: 20210203
  4. KISQALI [Suspect]
     Active Substance: RIBOCICLIB
     Indication: Hormone receptor positive HER2 negative breast cancer
     Dosage: 600 MG,(SCHEMA 21 DAYS INTAKE,7 DAYS PAUSE)
     Route: 048
     Dates: start: 20210126, end: 20210908
  5. KISQALI [Suspect]
     Active Substance: RIBOCICLIB
     Dosage: 600 MG,(SCHEMA 21 DAYS INTAKE,7 DAYS PAUSE)
     Route: 048
     Dates: start: 20210205
  6. KISQALI [Suspect]
     Active Substance: RIBOCICLIB
     Dosage: 600 MG,(SCHEMA 21 DAYS INTAKE,7 DAYS PAUSE)
     Route: 048
     Dates: start: 20210909

REACTIONS (8)
  - Atrial fibrillation [Not Recovered/Not Resolved]
  - Pyrexia [Recovered/Resolved]
  - Pneumonitis [Recovered/Resolved]
  - Alopecia [Unknown]
  - Hypertension [Recovered/Resolved]
  - Constipation [Recovered/Resolved]
  - Dyspnoea [Unknown]
  - Lacrimation increased [Unknown]

NARRATIVE: CASE EVENT DATE: 20210203
